FAERS Safety Report 4787726-5 (Version None)
Quarter: 2005Q3

REPORT INFORMATION
  Report Type: 
  Country: None (occurrence: None)
  Receive Date: 20050914
  Receipt Date: 20050808
  Transmission Date: 20060218
  Serious: Yes (Other)
  Sender: FDA-Public Use
  Company Number: 413269

PATIENT
  Sex: Female

DRUGS (3)
  1. BONIVA [Suspect]
     Indication: BONE DENSITY DECREASED
     Dosage: 1 DOSE FORM 1 PER ONE DOSE
  2. ARIMIDEX [Concomitant]
  3. ACTONEL [Concomitant]

REACTIONS (2)
  - BONE PAIN [None]
  - MYALGIA [None]
